FAERS Safety Report 15338070 (Version 1)
Quarter: 2018Q3

REPORT INFORMATION
  Report Type: Spontaneous
  Country: US (occurrence: US)
  Receive Date: 20180827
  Receipt Date: 20180827
  Transmission Date: 20181010
  Serious: Yes (Congenital Anomaly, Other)
  Sender: FDA-Public Use
  Company Number: None

PATIENT
  Age: 34 Year
  Sex: Female
  Weight: 56.25 kg

DRUGS (2)
  1. PRENATAL [Concomitant]
     Active Substance: VITAMINS
  2. ELLAONE 30MG [Suspect]
     Active Substance: ULIPRISTAL ACETATE
     Indication: CONTRACEPTION
     Dosage: ?          OTHER FREQUENCY:ONCE;?
     Route: 048
     Dates: start: 20180723, end: 20180723

REACTIONS (3)
  - Foetal death [None]
  - Maternal exposure during pregnancy [None]
  - Pregnancy on contraceptive [None]

NARRATIVE: CASE EVENT DATE: 20180723
